FAERS Safety Report 10670820 (Version 8)
Quarter: 2015Q2

REPORT INFORMATION
  Report Type: Spontaneous
  Country: US (occurrence: US)
  Receive Date: 20141223
  Receipt Date: 20150526
  Transmission Date: 20150821
  Serious: Yes (Life-Threatening, Hospitalization, Other)
  Sender: FDA-Public Use
  Company Number: US-PFIZER INC-2014350639

PATIENT
  Age: 64 Year
  Sex: Male
  Weight: 82 kg

DRUGS (3)
  1. LYRICA [Suspect]
     Active Substance: PREGABALIN
     Dosage: 150 MG, 1X/DAY
     Route: 048
  2. LYRICA [Suspect]
     Active Substance: PREGABALIN
     Indication: NEUROPATHY PERIPHERAL
     Dosage: 150 MG, 3X/DAY (1 MORNING/1NOON/2 NIGHT)
     Route: 048
     Dates: start: 2005
  3. LYRICA [Suspect]
     Active Substance: PREGABALIN
     Dosage: 50 MG, 4X/DAY (ONE IN THE MORNING, ONE AT NOON, TWO AT NIGHT)
     Route: 048
     Dates: end: 201501

REACTIONS (12)
  - Thrombosis [Unknown]
  - Back disorder [Recovering/Resolving]
  - Condition aggravated [Recovering/Resolving]
  - Cardiac arrest [Recovered/Resolved]
  - Intentional product misuse [Unknown]
  - Suicidal ideation [Unknown]
  - Weight decreased [Unknown]
  - Musculoskeletal disorder [Recovered/Resolved]
  - Neuropathy peripheral [Recovering/Resolving]
  - Weight increased [Unknown]
  - Insomnia [Not Recovered/Not Resolved]
  - Hunger [Unknown]

NARRATIVE: CASE EVENT DATE: 20120423
